FAERS Safety Report 13921684 (Version 5)
Quarter: 2017Q4

REPORT INFORMATION
  Report Type: Spontaneous
  Country: CA (occurrence: CA)
  Receive Date: 20170830
  Receipt Date: 20171211
  Transmission Date: 20180320
  Serious: Yes (Other)
  Sender: FDA-Public Use
  Company Number: CA-CELLTRION HEALTHCARE HUNGARY KFT-2017CA011235

PATIENT

DRUGS (7)
  1. METHOTREXATE. [Concomitant]
     Active Substance: METHOTREXATE
     Dosage: 20 MG, WEEKLY
     Route: 058
  2. INFLECTRA [Suspect]
     Active Substance: INFLIXIMAB-DYYB
     Dosage: 300 MG, THEN EVERY 6 WEEKS
     Route: 042
     Dates: start: 20171130
  3. M-ESLON [Concomitant]
     Active Substance: MORPHINE SULFATE
     Dosage: 10 MG PER TIME, UNK
     Route: 048
  4. INFLECTRA [Suspect]
     Active Substance: INFLIXIMAB-DYYB
     Dosage: 300 MG, THEN EVERY 6 WEEKS
     Route: 042
     Dates: start: 2017
  5. FOLIC ACID. [Concomitant]
     Active Substance: FOLIC ACID
     Dosage: UNK
  6. INFLECTRA [Suspect]
     Active Substance: INFLIXIMAB-DYYB
     Indication: PSORIATIC ARTHROPATHY
     Dosage: 300 MG, CYCLIC (EVERY 0, 2,6 WEEKS, THEN EVERY 8WEEKS FOR 4 MONTHS
     Route: 042
     Dates: start: 20170110, end: 2017
  7. AMOXICILLIN. [Concomitant]
     Active Substance: AMOXICILLIN
     Dosage: 500 MG, TID

REACTIONS (10)
  - Migraine [Unknown]
  - Nausea [Recovered/Resolved]
  - Sacroiliitis [Unknown]
  - Blood pressure fluctuation [Unknown]
  - Product use issue [Unknown]
  - Vomiting [Recovered/Resolved]
  - Headache [Recovered/Resolved]
  - Drug effect incomplete [Unknown]
  - Gastrointestinal injury [Unknown]
  - Lower respiratory tract infection [Unknown]

NARRATIVE: CASE EVENT DATE: 2017
